FAERS Safety Report 4566795-1 (Version None)
Quarter: 2005Q1

REPORT INFORMATION
  Report Type: 
  Country: None (occurrence: None)
  Receive Date: 20050201
  Receipt Date: 20020102
  Transmission Date: 20050727
  Serious: Yes (Other)
  Sender: FDA-Public Use
  Company Number: US-BRISTOL-MYERS SQUIBB COMPANY-11733839

PATIENT
  Age: 18 Year
  Sex: Female

DRUGS (5)
  1. STADOL [Suspect]
     Indication: MIGRAINE
     Route: 045
     Dates: start: 19940101, end: 19990101
  2. STADOL [Suspect]
     Dates: start: 19930101, end: 19990101
  3. SUSTIVA [Concomitant]
     Indication: HIV TEST POSITIVE
  4. ZERIT [Concomitant]
     Indication: HIV TEST POSITIVE
  5. EPIVIR [Concomitant]
     Indication: HIV TEST POSITIVE

REACTIONS (1)
  - DEPENDENCE [None]
